FAERS Safety Report 4864913-9 (Version None)
Quarter: 2005Q4

REPORT INFORMATION
  Report Type: 
  Country: None (occurrence: None)
  Receive Date: 20051201
  Receipt Date: 20050731
  Transmission Date: 20060501
  Serious: No
  Sender: FDA-Public Use
  Company Number: 2005PV000704

PATIENT
  Age: 52 Year
  Sex: Male
  Weight: 81.6475 kg

DRUGS (7)
  1. BYETTA [Suspect]
     Indication: DIABETES MELLITUS NON-INSULIN-DEPENDENT
     Dosage: 5 MCG; BID; SC
     Route: 058
     Dates: start: 20050527
  2. TOPROL [Concomitant]
  3. NORVASC [Concomitant]
  4. PRILOSEC [Concomitant]
  5. CRESTOR [Concomitant]
  6. GLUCOPHAGE [Concomitant]
  7. ACTOS [Concomitant]

REACTIONS (6)
  - ABDOMINAL PAIN UPPER [None]
  - BLOOD URINE [None]
  - DIARRHOEA [None]
  - NAUSEA [None]
  - RENAL PAIN [None]
  - VOMITING [None]
